FAERS Safety Report 8108428-3 (Version None)
Quarter: 2012Q1

REPORT INFORMATION
  Report Type: 
  Country: None (occurrence: None)
  Receive Date: 20120202
  Receipt Date: 20120130
  Transmission Date: 20120608
  Serious: Yes (Death, Disabling)
  Sender: FDA-Public Use
  Company Number: PHHY2012EC008172

PATIENT
  Sex: Female

DRUGS (1)
  1. DIOVAN HCT [Suspect]
     Indication: HYPERTENSION
     Dosage: 0.5 DF (160/12.5 MG), BID (HALF TABLET AM, HALF TABLET PM)
     Route: 048
     Dates: start: 20100323, end: 20110823

REACTIONS (4)
  - RESPIRATORY ARREST [None]
  - ASTHENIA [None]
  - APALLIC SYNDROME [None]
  - WRONG TECHNIQUE IN DRUG USAGE PROCESS [None]
